FAERS Safety Report 4425747-2 (Version None)
Quarter: 2004Q3

REPORT INFORMATION
  Report Type: 
  Country: None (occurrence: None)
  Receive Date: 20040810
  Receipt Date: 20040804
  Transmission Date: 20050211
  Serious: Yes (Other)
  Sender: FDA-Public Use
  Company Number: STA-AE-04-MTX-195

PATIENT
  Age: 39 Year
  Sex: Male

DRUGS (3)
  1. METHOTREXATE [Suspect]
     Indication: PSORIATIC ARTHROPATHY
     Dosage: 10 MG 1X PER 1 WK, ORAL
     Route: 048
     Dates: start: 20010201, end: 20040401
  2. KETOPROFEN [Concomitant]
  3. PROPOFAN (CAFFEINE/CARBASALATE CALCIUM/CHLORPHENAMINE MALEATE/DEXTROPR [Concomitant]

REACTIONS (3)
  - BLADDER CANCER [None]
  - HAEMATURIA [None]
  - URINE CYTOLOGY ABNORMAL [None]
